FAERS Safety Report 21383916 (Version 1)
Quarter: 2022Q3

REPORT INFORMATION
  Report Type: Spontaneous
  Country: DE (occurrence: DE)
  Receive Date: 20220928
  Receipt Date: 20220928
  Transmission Date: 20221026
  Serious: Yes (Hospitalization, Other)
  Sender: FDA-Public Use
  Company Number: DE-ADRED-07852-01

PATIENT
  Age: 85 Year
  Sex: Female
  Weight: 60 kg

DRUGS (11)
  1. CLOPIDOGREL [Suspect]
     Active Substance: CLOPIDOGREL BISULFATE
     Indication: Product used for unknown indication
     Dosage: 75 MILLIGRAM  (, 1-0-0-0)
     Route: 065
  2. APIXABAN [Suspect]
     Active Substance: APIXABAN
     Indication: Product used for unknown indication
     Dosage: 2.5 MILLIGRAM (1-0-1-0)
     Route: 065
  3. ASPIRIN [Suspect]
     Active Substance: ASPIRIN
     Indication: Product used for unknown indication
     Dosage: 100 MILLIGRAM (, 1-0-0-0)
     Route: 065
  4. ATORVASTATIN [Concomitant]
     Active Substance: ATORVASTATIN
     Indication: Product used for unknown indication
     Dosage: 10 MILLIGRAM (0-0-1-0)
     Route: 065
  5. BISOPROLOL [Concomitant]
     Active Substance: BISOPROLOL
     Indication: Product used for unknown indication
     Dosage: 5 MILLIGRAM ( 1-0-1-0)
     Route: 065
  6. HYDROCHLOROTHIAZIDE\RAMIPRIL [Concomitant]
     Active Substance: HYDROCHLOROTHIAZIDE\RAMIPRIL
     Indication: Product used for unknown indication
     Dosage: UNK (12.5|5 MG, 1-0-0-0)
     Route: 065
  7. LEVOTHYROXINE [Concomitant]
     Active Substance: LEVOTHYROXINE
     Indication: Product used for unknown indication
     Dosage: 0.075 MILLIGRAM (1-0-0-0)
     Route: 065
  8. MAGNESIUM [Concomitant]
     Active Substance: MAGNESIUM
     Indication: Product used for unknown indication
     Dosage: UNK (0-0-1-0)
     Route: 065
  9. PREGABALIN [Concomitant]
     Active Substance: PREGABALIN
     Indication: Product used for unknown indication
     Dosage: 50 MILLIGRAM (, 1-1-1-0)
     Route: 065
  10. RAMIPRIL [Concomitant]
     Active Substance: RAMIPRIL
     Indication: Product used for unknown indication
     Dosage: 5 MILLIGRAM (0-0-1-0)
     Route: 065
  11. TORSEMIDE [Concomitant]
     Active Substance: TORSEMIDE
     Indication: Product used for unknown indication
     Dosage: 2.5 MILLIGRAM (1-0-0-0)
     Route: 065

REACTIONS (8)
  - Haematochezia [Unknown]
  - Melaena [Unknown]
  - Renal impairment [Unknown]
  - Systemic infection [Unknown]
  - Anaemia [Unknown]
  - Condition aggravated [Unknown]
  - Disorientation [Unknown]
  - General physical health deterioration [Unknown]
